FAERS Safety Report 8125440-9 (Version None)
Quarter: 2012Q1

REPORT INFORMATION
  Report Type: 
  Country: None (occurrence: None)
  Receive Date: 20120209
  Receipt Date: 20120202
  Transmission Date: 20120608
  Serious: Yes (Hospitalization, Other)
  Sender: FDA-Public Use
  Company Number: US-MERCK-1106USA02749

PATIENT
  Age: 58 Year
  Sex: Female

DRUGS (4)
  1. FOSAMAX [Suspect]
     Indication: OSTEOPENIA
     Route: 048
     Dates: start: 19980101, end: 20020701
  2. EVISTA [Concomitant]
     Indication: OSTEOPENIA
     Route: 065
     Dates: start: 19990701, end: 20020301
  3. FOSAMAX [Suspect]
     Indication: OSTEOPOROSIS
     Route: 048
     Dates: start: 19980101, end: 20020701
  4. ALENDRONATE SODIUM [Suspect]
     Indication: OSTEOPOROSIS
     Route: 048
     Dates: start: 20020701, end: 20100910

REACTIONS (23)
  - FALL [None]
  - BREAST DISORDER FEMALE [None]
  - FEMORAL NECK FRACTURE [None]
  - BREAST DISORDER [None]
  - ANXIETY [None]
  - LIMB CRUSHING INJURY [None]
  - BASAL CELL CARCINOMA [None]
  - HIATUS HERNIA [None]
  - VULVOVAGINAL DRYNESS [None]
  - HERPES ZOSTER [None]
  - MUSCULAR WEAKNESS [None]
  - HYPERTENSION [None]
  - HYPERLIPIDAEMIA [None]
  - GASTRIC MUCOSA ERYTHEMA [None]
  - DYSPHAGIA [None]
  - BACK PAIN [None]
  - OSTEOARTHRITIS [None]
  - RECTAL HAEMORRHAGE [None]
  - GAIT DISTURBANCE [None]
  - OESOPHAGEAL STENOSIS [None]
  - ATROPHY [None]
  - HYPERCHOLESTEROLAEMIA [None]
  - DEPRESSION [None]
